FAERS Safety Report 24036308 (Version 1)
Quarter: 2024Q3

REPORT INFORMATION
  Report Type: Spontaneous
  Country: US (occurrence: US)
  Receive Date: 20240701
  Receipt Date: 20240701
  Transmission Date: 20241017
  Serious: Yes (Life-Threatening, Other)
  Sender: SANDOZ
  Company Number: US-002147023-NVSC2023US092175

PATIENT
  Sex: Male

DRUGS (6)
  1. OFEV [Suspect]
     Active Substance: NINTEDANIB
     Dosage: 300 MG, Q12H (150 MG)
     Route: 048
     Dates: start: 20220303
  2. OFEV [Suspect]
     Active Substance: NINTEDANIB
     Indication: Idiopathic pulmonary fibrosis
     Dosage: 300 MG, QD
     Route: 048
     Dates: start: 20220323
  3. OFEV [Suspect]
     Active Substance: NINTEDANIB
     Dosage: 300 MG
     Route: 048
     Dates: start: 20220322
  4. OZEMPIC [Suspect]
     Active Substance: SEMAGLUTIDE
     Indication: Product used for unknown indication
     Dosage: UNK
     Route: 065
  5. ZOFRAN [Suspect]
     Active Substance: ONDANSETRON HYDROCHLORIDE
     Indication: Nausea
     Dosage: UNK
     Route: 065
  6. PREDNISONE [Concomitant]
     Active Substance: PREDNISONE
     Indication: Oxygen saturation decreased
     Dosage: UNK
     Route: 065

REACTIONS (24)
  - Supraventricular tachycardia [Unknown]
  - Ageusia [Not Recovered/Not Resolved]
  - Neuropathy peripheral [Unknown]
  - Diabetes mellitus [Not Recovered/Not Resolved]
  - Oxygen saturation decreased [Unknown]
  - Constipation [Unknown]
  - COVID-19 [Recovering/Resolving]
  - Blood glucose increased [Unknown]
  - Dysgeusia [Unknown]
  - Post-traumatic pain [Unknown]
  - Drainage [Unknown]
  - Back pain [Not Recovered/Not Resolved]
  - Frustration tolerance decreased [Not Recovered/Not Resolved]
  - Diarrhoea [Not Recovered/Not Resolved]
  - Vomiting [Not Recovered/Not Resolved]
  - Abdominal distension [Not Recovered/Not Resolved]
  - Sleep apnoea syndrome [Unknown]
  - Taste disorder [Not Recovered/Not Resolved]
  - Nausea [Not Recovered/Not Resolved]
  - COVID-19 [Unknown]
  - Electric shock sensation [Not Recovered/Not Resolved]
  - Asthenia [Not Recovered/Not Resolved]
  - Wrong dose [Unknown]
  - Inappropriate schedule of product administration [Not Recovered/Not Resolved]

NARRATIVE: CASE EVENT DATE: 20220101
